FAERS Safety Report 16304014 (Version 1)
Quarter: 2019Q2

REPORT INFORMATION
  Report Type: Spontaneous
  Country: FI (occurrence: FI)
  Receive Date: 20190513
  Receipt Date: 20190513
  Transmission Date: 20190711
  Serious: Yes (Death, Other)
  Sender: FDA-Public Use
  Company Number: FI-MICRO LABS LIMITED-ML2019-01195

PATIENT
  Age: 76 Year
  Sex: Female

DRUGS (9)
  1. DESMETHYLDIAZEPAM [Concomitant]
     Active Substance: NORDAZEPAM
  2. DEXTROPROPOXYPHENE [Concomitant]
     Active Substance: PROPOXYPHENE HYDROCHLORIDE
  3. TEMAZEPAM. [Concomitant]
     Active Substance: TEMAZEPAM
  4. DIGOXIN. [Interacting]
     Active Substance: DIGOXIN
  5. DEXTROMETHORPHAN [Concomitant]
     Active Substance: DEXTROMETHORPHAN
  6. MIANSERIN [Concomitant]
     Active Substance: MIANSERIN
  7. VERAPAMIL HYDROCHLORIDE. [Suspect]
     Active Substance: VERAPAMIL HYDROCHLORIDE
  8. CITALOPRAM [Concomitant]
     Active Substance: CITALOPRAM HYDROBROMIDE
  9. OXAZEPAM. [Concomitant]
     Active Substance: OXAZEPAM

REACTIONS (3)
  - Drug interaction [Fatal]
  - Completed suicide [Fatal]
  - Toxicity to various agents [Fatal]
